FAERS Safety Report 16833245 (Version 1)
Quarter: 2019Q3

REPORT INFORMATION
  Report Type: Spontaneous
  Country: US (occurrence: US)
  Receive Date: 20190731
  Receipt Date: 20190731
  Transmission Date: 20191005
  Serious: No
  Sender: FDA-Public Use
  Company Number: None

PATIENT
  Age: 46 Year
  Sex: Male

DRUGS (1)
  1. TEMOZOLOMIDE 100MG CAP [Suspect]
     Active Substance: TEMOZOLOMIDE
     Dates: start: 201906

REACTIONS (4)
  - Headache [None]
  - Feeling abnormal [None]
  - Cold sweat [None]
  - Product substitution issue [None]

NARRATIVE: CASE EVENT DATE: 20190731
